FAERS Safety Report 18711950 (Version 3)
Quarter: 2021Q1

REPORT INFORMATION
  Report Type: Report from Study
  Country: None (occurrence: US)
  Receive Date: 20210107
  Receipt Date: 20210129
  Transmission Date: 20210419
  Serious: Yes (Other)
  Sender: FDA-Public Use
  Company Number: US-ABBVIE-21K-163-3719509-00

PATIENT
  Sex: Female
  Weight: 47.22 kg

DRUGS (8)
  1. DUOPA [Suspect]
     Active Substance: CARBIDOPA\LEVODOPA
     Dosage: STRENGTH (CMP): 4.63 MG/ML 20 MG/ML.
     Route: 050
  2. ROPINIROL [Concomitant]
     Active Substance: ROPINIROLE
     Indication: PRODUCT USED FOR UNKNOWN INDICATION
     Route: 048
  3. DUOPA [Suspect]
     Active Substance: CARBIDOPA\LEVODOPA
     Indication: PRODUCT USED FOR UNKNOWN INDICATION
     Dosage: STRENGTH (CMP): 4.63 MG/ML 20 MG/ML.
     Route: 050
     Dates: start: 20191022, end: 202101
  4. METOPROLOL. [Concomitant]
     Active Substance: METOPROLOL
     Indication: PRODUCT USED FOR UNKNOWN INDICATION
     Route: 048
  5. GABAPENTIN. [Concomitant]
     Active Substance: GABAPENTIN
     Indication: PRODUCT USED FOR UNKNOWN INDICATION
     Route: 048
  6. IBUPROFEN. [Concomitant]
     Active Substance: IBUPROFEN
     Indication: PRODUCT USED FOR UNKNOWN INDICATION
     Route: 048
  7. QUETIAPINE. [Concomitant]
     Active Substance: QUETIAPINE
     Indication: PRODUCT USED FOR UNKNOWN INDICATION
     Route: 048
  8. AMANTADINE. [Concomitant]
     Active Substance: AMANTADINE HYDROCHLORIDE
     Indication: PRODUCT USED FOR UNKNOWN INDICATION
     Route: 048

REACTIONS (17)
  - Feeling abnormal [Not Recovered/Not Resolved]
  - Tremor [Recovered/Resolved]
  - Stoma site discharge [Unknown]
  - Fall [Not Recovered/Not Resolved]
  - Stoma site pain [Not Recovered/Not Resolved]
  - Anal incontinence [Unknown]
  - Abdominal pain upper [Not Recovered/Not Resolved]
  - Device occlusion [Unknown]
  - Depression [Unknown]
  - Disease progression [Unknown]
  - Dysphonia [Unknown]
  - Drug ineffective [Unknown]
  - Unevaluable event [Unknown]
  - Pelvic fracture [Not Recovered/Not Resolved]
  - Medical device pain [Unknown]
  - Memory impairment [Unknown]
  - Urinary incontinence [Unknown]

NARRATIVE: CASE EVENT DATE: 2019
